FAERS Safety Report 4963077-0 (Version None)
Quarter: 2006Q2

REPORT INFORMATION
  Report Type: 
  Country: None (occurrence: None)
  Receive Date: 20060405
  Receipt Date: 20051114
  Transmission Date: 20061013
  Serious: Yes (Death, Life-Threatening)
  Sender: FDA-Public Use
  Company Number: FR-GLAXOSMITHKLINE-B0400672A

PATIENT
  Age: 42 Year
  Sex: Male
  Weight: 44 kg

DRUGS (4)
  1. WELLVONE [Suspect]
     Indication: PNEUMOCYSTIS JIROVECI PNEUMONIA
     Dosage: 7.5ML TWICE PER DAY
     Route: 048
     Dates: start: 20050901, end: 20051101
  2. PENTACARINAT [Suspect]
     Indication: PNEUMOCYSTIS JIROVECI PNEUMONIA
     Route: 042
     Dates: start: 20051107, end: 20051107
  3. PYRIMETHAMINE TAB [Concomitant]
     Indication: PNEUMOCYSTIS JIROVECI PNEUMONIA
     Route: 048
     Dates: start: 20050901, end: 20051101
  4. HIV TRIPLE THERAPY [Concomitant]
     Route: 065

REACTIONS (9)
  - BLOOD PRESSURE DECREASED [None]
  - CARDIOGENIC SHOCK [None]
  - CARDIOPULMONARY FAILURE [None]
  - DRUG INEFFECTIVE [None]
  - HYPERSENSITIVITY [None]
  - MALABSORPTION [None]
  - MALAISE [None]
  - PARAESTHESIA [None]
  - PNEUMOCYSTIS JIROVECI PNEUMONIA [None]
